FAERS Safety Report 16455645 (Version 8)
Quarter: 2020Q1

REPORT INFORMATION
  Report Type: Spontaneous
  Country: IT (occurrence: IT)
  Receive Date: 20190620
  Receipt Date: 20200104
  Transmission Date: 20200409
  Serious: Yes (Other)
  Sender: FDA-Public Use
  Company Number: IT-AUROBINDO-AUR-APL-2019-034691

PATIENT
  Age: 63 Year
  Sex: Male

DRUGS (1)
  1. OLMESARTAN FILM COATED TABLETS [Suspect]
     Active Substance: OLMESARTAN
     Indication: HYPERTENSION
     Dosage: UNK
     Route: 048

REACTIONS (9)
  - Weight decreased [Recovered/Resolved]
  - Diarrhoea [Recovered/Resolved]
  - Blood zinc abnormal [Recovered/Resolved]
  - Intestinal villi atrophy [Recovered/Resolved]
  - Sprue-like enteropathy [Recovered/Resolved]
  - Intestinal mucosal atrophy [Recovered/Resolved]
  - Microvillous inclusion disease [Recovered/Resolved]
  - Gastrointestinal disorder [Recovered/Resolved]
  - Lymphocytosis [Recovered/Resolved]
